FAERS Safety Report 14083750 (Version 2)
Quarter: 2017Q4

REPORT INFORMATION
  Report Type: Spontaneous
  Country: US (occurrence: US)
  Receive Date: 20171013
  Receipt Date: 20171030
  Transmission Date: 20180321
  Serious: Yes (Hospitalization)
  Sender: FDA-Public Use
  Company Number: US-CIPLA LTD.-2017US18003

PATIENT

DRUGS (10)
  1. ALBUTEROL HFA, SALBUTAMOL [Concomitant]
     Dosage: UNK
     Route: 065
  2. MESALAMINE. [Concomitant]
     Active Substance: MESALAMINE
     Dosage: UNK
     Route: 065
  3. FLUTICASONE PROPIONATE, SALMETEROL [Concomitant]
     Dosage: UNK
     Route: 065
  4. GABAPENTIN. [Suspect]
     Active Substance: GABAPENTIN
     Dosage: 78 G, IN TOTAL, OVER THE PREVIOUS 48 H
     Route: 065
  5. BUPROPION. [Concomitant]
     Active Substance: BUPROPION
     Dosage: SUSTAINED RELEASE, UNKNOWN
     Route: 065
  6. PANTOPRAZOLE [Concomitant]
     Active Substance: PANTOPRAZOLE
     Dosage: UNK
     Route: 065
  7. TRAZODONE [Concomitant]
     Active Substance: TRAZODONE HYDROCHLORIDE
     Dosage: UNK
     Route: 065
  8. GABAPENTIN. [Suspect]
     Active Substance: GABAPENTIN
     Indication: RESTLESS LEGS SYNDROME
     Dosage: UNK
     Route: 065
  9. VARENICLINE [Concomitant]
     Active Substance: VARENICLINE
     Dosage: UNK
     Route: 065
  10. RANITIDINE. [Concomitant]
     Active Substance: RANITIDINE
     Dosage: UNK
     Route: 065

REACTIONS (6)
  - Vomiting [Unknown]
  - Drug abuse [Unknown]
  - Seizure [Unknown]
  - Marital problem [Unknown]
  - Overdose [Unknown]
  - Hyponatraemia [Unknown]
